FAERS Safety Report 13446292 (Version 1)
Quarter: 2017Q2

REPORT INFORMATION
  Report Type: Report from Study
  Country: US (occurrence: US)
  Receive Date: 20170417
  Receipt Date: 20170417
  Transmission Date: 20170830
  Serious: No
  Sender: FDA-Public Use
  Company Number: US-AMGEN-USASL2017053818

PATIENT
  Age: 53 Year
  Sex: Female

DRUGS (1)
  1. ENBREL [Suspect]
     Active Substance: ETANERCEPT
     Indication: PSORIASIS
     Dosage: UNK, UNK
     Route: 065
     Dates: start: 20170104

REACTIONS (2)
  - Sinusitis [Unknown]
  - Muscle twitching [Unknown]

NARRATIVE: CASE EVENT DATE: 2017
